FAERS Safety Report 9395707 (Version 2)
Quarter: 2013Q4

REPORT INFORMATION
  Report Type: Report from Study
  Country: US (occurrence: US)
  Receive Date: 20130711
  Receipt Date: 20131016
  Transmission Date: 20140711
  Serious: Yes (Hospitalization, Other)
  Sender: FDA-Public Use
  Company Number: US-US-EMD SERONO, INC.-7222624

PATIENT
  Age: 48 Year
  Sex: Female
  Weight: 104 kg

DRUGS (1)
  1. REBIF [Suspect]
     Indication: MULTIPLE SCLEROSIS
     Route: 058
     Dates: start: 20130311

REACTIONS (6)
  - Spinal cord compression [Recovered/Resolved]
  - Hypertension [Recovered/Resolved]
  - Pharyngitis streptococcal [Recovering/Resolving]
  - Sciatica [Unknown]
  - Arthralgia [Recovered/Resolved]
  - Injection site erythema [Not Recovered/Not Resolved]
